FAERS Safety Report 7638491-5 (Version None)
Quarter: 2011Q3

REPORT INFORMATION
  Report Type: 
  Country: None (occurrence: None)
  Receive Date: 20110727
  Receipt Date: 20110712
  Transmission Date: 20111222
  Serious: Yes (Hospitalization, Other)
  Sender: FDA-Public Use
  Company Number: PHHY2011KR67172

PATIENT
  Age: 36 Year
  Sex: Female

DRUGS (9)
  1. GABAPENTIN [Concomitant]
     Dosage: UNK
  2. ZOLPIDEM [Concomitant]
     Dosage: UNK
  3. HALOPERIDOL [Concomitant]
     Dosage: UNK
  4. CARBAMAZEPINE [Suspect]
     Dosage: UNK
  5. ZYPREXA [Concomitant]
     Dosage: 15 MG - 20 MG/DAY
  6. CLONAZEPAM [Concomitant]
     Dosage: UNK
  7. ROPINIROLE [Concomitant]
     Dosage: UNK
  8. BENZTROPINE MESYLATE [Concomitant]
     Dosage: UNK
  9. ZYPREXA [Concomitant]
     Dosage: 5 MG, UNK

REACTIONS (6)
  - SCHIZOPHRENIA [None]
  - INSOMNIA [None]
  - PERSECUTORY DELUSION [None]
  - RESTLESS LEGS SYNDROME [None]
  - HALLUCINATION, AUDITORY [None]
  - INTENTIONAL OVERDOSE [None]
